FAERS Safety Report 7824625-6 (Version None)
Quarter: 2011Q4

REPORT INFORMATION
  Report Type: 
  Country: None (occurrence: None)
  Receive Date: 20111019
  Receipt Date: 20111017
  Transmission Date: 20120403
  Serious: Yes (Life-Threatening)
  Sender: FDA-Public Use
  Company Number: JP-BAYER-2011-095787

PATIENT
  Age: 63 Year
  Sex: Male
  Weight: 62 kg

DRUGS (8)
  1. FOSRENOL [Suspect]
     Indication: HYPERPHOSPHATAEMIA
     Dosage: 200 MG, UNK
     Route: 048
     Dates: start: 20090908, end: 20110814
  2. ONEALFA [Concomitant]
     Dosage: DAILY DOSE .25 ?G
     Route: 048
  3. PROTECADIN [Concomitant]
     Dosage: DAILY DOSE 10 MG
     Route: 048
  4. ALLOPURINOL [Concomitant]
     Dosage: 150 MG, PRN
     Route: 048
  5. BERAPROST SODIUM [Concomitant]
     Dosage: DAILY DOSE 80 ?G
     Route: 048
  6. ASPIRIN [Suspect]
     Indication: PRODUCT USED FOR UNKNOWN INDICATION
     Dosage: DAILY DOSE 100 MG
     Route: 048
     Dates: start: 20080101
  7. PERINDOPRIL ERBUMINE [Concomitant]
     Dosage: DAILY DOSE 6 MG
     Route: 048
  8. LANDEL [Concomitant]
     Dosage: DAILY DOSE 40 MG
     Route: 048

REACTIONS (4)
  - VOMITING [None]
  - ABDOMINAL PAIN [None]
  - DIARRHOEA [None]
  - GASTROINTESTINAL PERFORATION [None]
